FAERS Safety Report 11196692 (Version 2)
Quarter: 2015Q3

REPORT INFORMATION
  Report Type: Spontaneous
  Country: IT (occurrence: IT)
  Receive Date: 20150617
  Receipt Date: 20150929
  Transmission Date: 20151125
  Serious: Yes (Life-Threatening, Hospitalization, Other)
  Sender: FDA-Public Use
  Company Number: IT-PFIZER INC-2015202280

PATIENT
  Age: 37 Year
  Sex: Female

DRUGS (7)
  1. PROZAC [Suspect]
     Active Substance: FLUOXETINE HYDROCHLORIDE
     Dosage: 15 DOSAGE UNITS OF 20 MG, SINGLE
     Route: 048
     Dates: start: 20150503, end: 20150503
  2. EN [Suspect]
     Active Substance: DELORAZEPAM
     Dosage: 20 DOSAGE UNITS OF 0.5 MG, SINGLE
     Route: 048
     Dates: start: 20150503, end: 20150503
  3. ABILIFY [Suspect]
     Active Substance: ARIPIPRAZOLE
     Dosage: 28 DOSAGE UNITS OF 5 MG, SINGLE
     Route: 048
     Dates: start: 20150503, end: 20150503
  4. SERTRALINE HCL [Suspect]
     Active Substance: SERTRALINE HYDROCHLORIDE
     Dosage: 30 DF, SINGLE
     Route: 048
     Dates: start: 20150503, end: 20150503
  5. DEPAKIN [Suspect]
     Active Substance: VALPROATE SODIUM
     Dosage: 26 DOSAGE UNITS OF 200 MG , SINGLE
     Route: 048
     Dates: start: 20150503, end: 20150503
  6. GABAPENTIN. [Suspect]
     Active Substance: GABAPENTIN
     Dosage: 50 DF, SINGLE
     Route: 048
     Dates: start: 20150503, end: 20150503
  7. LAROXYL [Concomitant]
     Active Substance: AMITRIPTYLINE

REACTIONS (6)
  - Blood pressure decreased [Recovering/Resolving]
  - Oxygen saturation decreased [Recovering/Resolving]
  - Drug abuse [Recovering/Resolving]
  - Intentional overdose [Recovering/Resolving]
  - Coma [Recovered/Resolved]
  - Self injurious behaviour [Recovering/Resolving]

NARRATIVE: CASE EVENT DATE: 20150503
